FAERS Safety Report 6555074-9 (Version None)
Quarter: 2010Q1

REPORT INFORMATION
  Report Type: 
  Country: None (occurrence: None)
  Receive Date: 20100126
  Receipt Date: 20100126
  Transmission Date: 20100710
  Serious: No
  Sender: FDA-Public Use
  Company Number: None

PATIENT
  Sex: Female
  Weight: 62.5964 kg

DRUGS (1)
  1. METOCLOPRAMIDE [Suspect]
     Indication: DYSPEPSIA
     Dosage: 3 TAB DAY
     Dates: start: 20091001, end: 20091218

REACTIONS (15)
  - ABDOMINAL DISTENSION [None]
  - BLEPHAROSPASM [None]
  - CONFUSIONAL STATE [None]
  - COORDINATION ABNORMAL [None]
  - DIZZINESS [None]
  - DYSARTHRIA [None]
  - FLATULENCE [None]
  - HEADACHE [None]
  - HEART RATE INCREASED [None]
  - HYPERHIDROSIS [None]
  - LOSS OF LIBIDO [None]
  - MUSCLE SPASMS [None]
  - NERVOUSNESS [None]
  - SLEEP DISORDER [None]
  - URINARY INCONTINENCE [None]
